FAERS Safety Report 6177585-0 (Version None)
Quarter: 2009Q2

REPORT INFORMATION
  Report Type: 
  Country: None (occurrence: None)
  Receive Date: 20090504
  Receipt Date: 20090504
  Transmission Date: 20091009
  Serious: Yes (Other)
  Sender: FDA-Public Use
  Company Number: CH-PFIZER INC-2009186597

PATIENT

DRUGS (2)
  1. ATORVASTATIN CALCIUM [Suspect]
  2. ACETYLSALICYLIC ACID [Concomitant]

REACTIONS (1)
  - CHOLESTASIS [None]
